FAERS Safety Report 8996858 (Version 1)
Quarter: 2012Q4

REPORT INFORMATION
  Report Type: Spontaneous
  Country: US (occurrence: None)
  Receive Date: 20121221
  Receipt Date: 20121221
  Transmission Date: 20130627
  Serious: Yes (Life-Threatening, Hospitalization)
  Sender: FDA-Public Use
  Company Number: 2012-22278

PATIENT
  Age: 40 Year
  Sex: Female

DRUGS (1)
  1. IBUPROFEN (UNKNOWN) (IBUPROFEN) UNK, UNKUNK [Suspect]
     Indication: TOOTHACHE
     Dates: start: 20030416

REACTIONS (6)
  - Cardiac failure [None]
  - Swelling face [None]
  - Abdominal pain upper [None]
  - Drug withdrawal syndrome [None]
  - Fibrin D dimer increased [None]
  - Drug hypersensitivity [None]
